FAERS Safety Report 4663606-0 (Version None)
Quarter: 2005Q2

REPORT INFORMATION
  Report Type: 
  Country: None (occurrence: None)
  Receive Date: 20050517
  Receipt Date: 20050502
  Transmission Date: 20051028
  Serious: Yes (Death, Hospitalization)
  Sender: FDA-Public Use
  Company Number: A0556857A

PATIENT
  Age: 68 Year
  Sex: Male

DRUGS (1)
  1. BC HEADACHE POWDER [Suspect]
     Indication: ARTHRITIS
     Dosage: 2PACK PER DAY
     Route: 048
     Dates: start: 19680101

REACTIONS (1)
  - OESOPHAGEAL CARCINOMA [None]
